FAERS Safety Report 9255956 (Version 2)
Quarter: 2013Q2

REPORT INFORMATION
  Report Type: Spontaneous
  Country: ES (occurrence: ES)
  Receive Date: 20130425
  Receipt Date: 20130506
  Transmission Date: 20140414
  Serious: Yes (Death, Hospitalization)
  Sender: FDA-Public Use
  Company Number: PHHY2013ES040155

PATIENT
  Age: 51 Year
  Sex: Female

DRUGS (1)
  1. ACETYLSALICYLIC ACID [Suspect]
     Indication: CEREBROVASCULAR ACCIDENT
     Dosage: 100 MG, QD

REACTIONS (13)
  - Brain death [Fatal]
  - Cytotoxic oedema [Unknown]
  - Cerebellar infarction [Unknown]
  - Hydrocephalus [Unknown]
  - Headache [Unknown]
  - Intracranial pressure increased [Unknown]
  - Somnolence [Unknown]
  - Mydriasis [Unknown]
  - Haemodynamic instability [Unknown]
  - Hypertension [Unknown]
  - Bradypnoea [Unknown]
  - Nausea [Unknown]
  - Haemorrhage [Unknown]
